FAERS Safety Report 5148631-8 (Version None)
Quarter: 2006Q4

REPORT INFORMATION
  Report Type: 
  Country: None (occurrence: None)
  Receive Date: 20061107
  Receipt Date: 20061025
  Transmission Date: 20070319
  Serious: Yes (Death, Hospitalization, Disabling)
  Sender: FDA-Public Use
  Company Number: 23100351

PATIENT
  Age: 78 Year
  Sex: Male

DRUGS (8)
  1. ARGATROBAN [Suspect]
     Indication: HEPARIN-INDUCED THROMBOCYTOPENIA
     Dosage: 0.5 MCG/KG/MIN CONT IV
     Route: 042
     Dates: start: 20061021, end: 20061024
  2. DILTIAZEM [Concomitant]
  3. NORVASC [Concomitant]
  4. PRONTONIX [Concomitant]
  5. METOPROLOL [Concomitant]
  6. DIGOXIN [Concomitant]
  7. LORAZEPAM [Concomitant]
  8. VITAMIN K [Concomitant]

REACTIONS (5)
  - ACTIVATED PARTIAL THROMBOPLASTIN TIME PROLONGED [None]
  - ACTIVATED PARTIAL THROMBOPLASTIN TIME SHORTENED [None]
  - BURKITT'S LYMPHOMA STAGE IV [None]
  - METASTASES TO PANCREAS [None]
  - RENAL FAILURE ACUTE [None]
